FAERS Safety Report 6397337-6 (Version None)
Quarter: 2009Q4

REPORT INFORMATION
  Report Type: 
  Country: None (occurrence: None)
  Receive Date: 20091012
  Receipt Date: 20090928
  Transmission Date: 20100525
  Serious: Yes (Other)
  Sender: FDA-Public Use
  Company Number: US-GENENTECH-291716

PATIENT

DRUGS (2)
  1. HERCEPTIN [Suspect]
     Indication: BREAST CANCER METASTATIC
     Dosage: 4 MG/KG, UNK
     Route: 042
  2. PROLEUKIN [Suspect]
     Indication: BREAST CANCER METASTATIC
     Route: 058

REACTIONS (6)
  - DIZZINESS [None]
  - HYPERCALCAEMIA [None]
  - NAUSEA [None]
  - PLEURAL EFFUSION [None]
  - PYREXIA [None]
  - VOMITING [None]
